FAERS Safety Report 9102039 (Version 6)
Quarter: 2014Q3

REPORT INFORMATION
  Report Type: Spontaneous
  Country: US (occurrence: US)
  Receive Date: 20130218
  Receipt Date: 20140711
  Transmission Date: 20150326
  Serious: Yes (Hospitalization, Other)
  Sender: FDA-Public Use
  Company Number: US-009507513-1302USA006710

PATIENT
  Sex: Female
  Weight: 68.27 kg

DRUGS (5)
  1. NUVARING [Suspect]
     Active Substance: ETHINYL ESTRADIOL\ETONOGESTREL
     Indication: CONTRACEPTION
     Dosage: UNK
     Route: 067
     Dates: start: 200703, end: 20100213
  2. NUVARING [Suspect]
     Active Substance: ETHINYL ESTRADIOL\ETONOGESTREL
     Indication: HORMONE REPLACEMENT THERAPY
  3. ELETRIPTAN [Concomitant]
     Active Substance: ELETRIPTAN
     Indication: MIGRAINE
     Dosage: UNK
     Dates: start: 2006
  4. PROMETHAZINE [Concomitant]
     Active Substance: PROMETHAZINE\PROMETHAZINE HYDROCHLORIDE
     Indication: NAUSEA
     Dosage: UNK
     Dates: start: 2006, end: 2013
  5. ZYRTEC [Concomitant]
     Active Substance: CETIRIZINE HYDROCHLORIDE
     Indication: SEASONAL ALLERGY
     Dosage: 10 MG, QD
     Dates: start: 2004

REACTIONS (38)
  - Coagulopathy [Unknown]
  - Insomnia [Unknown]
  - Tricuspid valve incompetence [Unknown]
  - Hyperlipidaemia [Unknown]
  - Visual acuity reduced [Unknown]
  - Deep vein thrombosis [Recovered/Resolved]
  - Pulmonary valve incompetence [Unknown]
  - Fatigue [Unknown]
  - Haemorrhoids [Unknown]
  - Abscess [Unknown]
  - Uterine dilation and curettage [Unknown]
  - Skin sensitisation [Unknown]
  - Seasonal allergy [Unknown]
  - Sinus disorder [Unknown]
  - Pain [Unknown]
  - Asthenia [Unknown]
  - Joint swelling [Unknown]
  - Pulmonary embolism [Unknown]
  - Sinus congestion [Unknown]
  - Stress [Unknown]
  - Off label use [Unknown]
  - Dyslipidaemia [Unknown]
  - Dizziness [Unknown]
  - Sinus headache [Unknown]
  - Paraesthesia [Unknown]
  - Vaginal haemorrhage [Unknown]
  - Sleep apnoea syndrome [Unknown]
  - Palpitations [Unknown]
  - Deafness [Unknown]
  - Melanocytic naevus [Unknown]
  - Decreased appetite [Unknown]
  - Sinus operation [Unknown]
  - Polyp [Unknown]
  - Diastolic dysfunction [Unknown]
  - Fall [Unknown]
  - Anxiety [Unknown]
  - Increased tendency to bruise [Unknown]
  - Incorrect drug administration duration [Unknown]

NARRATIVE: CASE EVENT DATE: 200703
